FAERS Safety Report 19322355 (Version 1)
Quarter: 2021Q2

REPORT INFORMATION
  Report Type: Spontaneous
  Country: BR (occurrence: BR)
  Receive Date: 20210528
  Receipt Date: 20210528
  Transmission Date: 20210717
  Serious: Yes (Death, Hospitalization, Other)
  Sender: FDA-Public Use
  Company Number: BR-UCBSA-2021025117

PATIENT
  Sex: Female

DRUGS (1)
  1. CIMZIA [Suspect]
     Active Substance: CERTOLIZUMAB PEGOL
     Indication: PSORIATIC ARTHROPATHY
     Dosage: UNK

REACTIONS (10)
  - Cough [Not Recovered/Not Resolved]
  - Infection [Fatal]
  - Depression [Not Recovered/Not Resolved]
  - Dehydration [Not Recovered/Not Resolved]
  - SARS-CoV-2 test negative [Unknown]
  - Decreased appetite [Unknown]
  - Hypotension [Not Recovered/Not Resolved]
  - Abdominal pain [Not Recovered/Not Resolved]
  - Leukocytosis [Not Recovered/Not Resolved]
  - Exposure to SARS-CoV-2 [Unknown]
